FAERS Safety Report 8297809-3 (Version None)
Quarter: 2012Q2

REPORT INFORMATION
  Report Type: 
  Country: None (occurrence: None)
  Receive Date: 20120419
  Receipt Date: 20120413
  Transmission Date: 20120825
  Serious: Yes (Other)
  Sender: FDA-Public Use
  Company Number: US-BAYER-2012-036475

PATIENT
  Age: 53 Year
  Sex: Female

DRUGS (4)
  1. PRAVASTATIN [Concomitant]
     Dosage: 10 MG, UNK
     Route: 048
  2. BETASERON [Suspect]
     Dosage: 0.3 MG, QOD
     Route: 058
  3. MICARDIS [Concomitant]
     Dosage: 40 MG, UNK
     Route: 048
  4. CALCIUM D [Concomitant]
     Route: 048

REACTIONS (1)
  - SINUSITIS [None]
